FAERS Safety Report 8152987-1 (Version None)
Quarter: 2012Q1

REPORT INFORMATION
  Report Type: 
  Country: None (occurrence: None)
  Receive Date: 20120221
  Receipt Date: 20120216
  Transmission Date: 20120608
  Serious: No
  Sender: FDA-Public Use
  Company Number: US-PFIZER INC-2012042859

PATIENT
  Sex: Female
  Weight: 92.971 kg

DRUGS (5)
  1. CHANTIX [Suspect]
     Dosage: UNK, 2X/DAY
     Dates: start: 20100101, end: 20100701
  2. CHANTIX [Suspect]
     Indication: SMOKING CESSATION THERAPY
     Dosage: 0.5 MG, 1X/DAY
     Dates: start: 20100621, end: 20100101
  3. METOPROLOL [Concomitant]
     Indication: HYPERTENSION
     Dosage: 50 MG, DAILY
  4. METFORMIN [Concomitant]
     Indication: TYPE 2 DIABETES MELLITUS
     Dosage: 1000 MG, 2X/DAY
  5. DILANTIN [Concomitant]
     Indication: CONVULSION
     Dosage: 100 MG, DAILY

REACTIONS (2)
  - MALAISE [None]
  - H1N1 INFLUENZA [None]
